FAERS Safety Report 12161310 (Version 1)
Quarter: 2016Q1

REPORT INFORMATION
  Report Type: Spontaneous
  Country: US (occurrence: US)
  Receive Date: 20160308
  Receipt Date: 20160308
  Transmission Date: 20160526
  Serious: No
  Sender: FDA-Public Use
  Company Number: ALCN2016US001684

PATIENT

DRUGS (1)
  1. GENTEAL GEL [Suspect]
     Active Substance: CARBOXYMETHYLCELLULOSE SODIUM\HYPROMELLOSES
     Indication: DRY EYE
     Dosage: UNK GTT, PRN
     Route: 047
     Dates: start: 20160222

REACTIONS (2)
  - Product container issue [Recovered/Resolved]
  - Product dropper issue [Unknown]

NARRATIVE: CASE EVENT DATE: 201602
